FAERS Safety Report 13372774 (Version 1)
Quarter: 2017Q1

REPORT INFORMATION
  Report Type: Spontaneous
  Country: US (occurrence: US)
  Receive Date: 20170324
  Receipt Date: 20170324
  Transmission Date: 20170429
  Serious: Yes (Other)
  Sender: FDA-Public Use
  Company Number: None

PATIENT
  Age: 62 Year
  Sex: Female
  Weight: 71.1 kg

DRUGS (1)
  1. GLASSIA [Suspect]
     Active Substance: .ALPHA.1-PROTEINASE INHIBITOR HUMAN
     Indication: PRODUCT USED FOR UNKNOWN INDICATION
     Dosage: ?          OTHER FREQUENCY:QWK;?
     Route: 042
     Dates: start: 20170301, end: 20170324

REACTIONS (7)
  - Nausea [None]
  - Vomiting [None]
  - Decreased appetite [None]
  - Feeling cold [None]
  - Malaise [None]
  - Diarrhoea [None]
  - Swelling [None]

NARRATIVE: CASE EVENT DATE: 20170323
